FAERS Safety Report 6220061-7 (Version None)
Quarter: 2009Q2

REPORT INFORMATION
  Report Type: 
  Country: None (occurrence: None)
  Receive Date: 20090609
  Receipt Date: 20090601
  Transmission Date: 20091009
  Serious: Yes (Hospitalization, Other)
  Sender: FDA-Public Use
  Company Number: PHHY2009SE19915

PATIENT
  Sex: Male

DRUGS (2)
  1. GLEEVEC [Suspect]
     Indication: MALIGNANT MELANOMA
     Dosage: 400 MG, QD
     Dates: start: 20090114, end: 20090329
  2. GLEEVEC [Suspect]
     Dosage: 400 MG, QD
     Dates: start: 20090422, end: 20090510

REACTIONS (8)
  - ABDOMINAL PAIN [None]
  - ANAEMIA [None]
  - CHOLANGITIS [None]
  - CHOLESTASIS [None]
  - FAECES DISCOLOURED [None]
  - GASTRITIS [None]
  - GASTROINTESTINAL HAEMORRHAGE [None]
  - HAEMOGLOBIN DECREASED [None]
